FAERS Safety Report 12269509 (Version 3)
Quarter: 2016Q2

REPORT INFORMATION
  Report Type: Spontaneous
  Country: IT (occurrence: IT)
  Receive Date: 20160414
  Receipt Date: 20160428
  Transmission Date: 20160815
  Serious: Yes (Other)
  Sender: FDA-Public Use
  Company Number: IT-TEVA-650595ACC

PATIENT
  Age: 85 Year
  Sex: Male

DRUGS (11)
  1. DELTACORTENE - 5 MG COMPRESSE [Concomitant]
     Indication: PRODUCT USED FOR UNKNOWN INDICATION
     Route: 048
  2. TORVAST - 10 MG COMPRESSE MASTICABILI [Concomitant]
     Indication: PRODUCT USED FOR UNKNOWN INDICATION
     Route: 048
  3. LEVOFLOXACIN. [Suspect]
     Active Substance: LEVOFLOXACIN
     Indication: URINARY TRACT INFECTION
     Dosage: DAILY
     Route: 048
     Dates: end: 20151104
  4. RANEXA - 375 MG COMPRESSA A RILASCIO PROLUNGATO [Concomitant]
     Indication: PRODUCT USED FOR UNKNOWN INDICATION
     Route: 048
  5. BISOPROLOL FUMARATE. [Concomitant]
     Active Substance: BISOPROLOL FUMARATE
     Indication: PRODUCT USED FOR UNKNOWN INDICATION
     Route: 048
  6. ESKIM - 1000 MG CAPSULE MOLLI [Concomitant]
     Indication: PRODUCT USED FOR UNKNOWN INDICATION
     Route: 048
  7. BRILIQUE - 90 MG COMPRESSE RIVESTITE CON FILM [Concomitant]
     Indication: PRODUCT USED FOR UNKNOWN INDICATION
     Route: 048
  8. AVODART - 0.5 MG CAPSULE MOLLI [Concomitant]
     Indication: PRODUCT USED FOR UNKNOWN INDICATION
     Route: 048
  9. HALCION [Concomitant]
     Active Substance: TRIAZOLAM
     Indication: PRODUCT USED FOR UNKNOWN INDICATION
     Route: 048
  10. XANAX - 0.25 MG COMPRESSE [Concomitant]
     Indication: PRODUCT USED FOR UNKNOWN INDICATION
     Route: 048
  11. ALIFLUS DISKUS - 50 MCG + 100 MCG POLVERE PER INALAZIONE [Concomitant]
     Indication: PRODUCT USED FOR UNKNOWN INDICATION
     Route: 055

REACTIONS (3)
  - Hallucination, auditory [Unknown]
  - Hallucination, visual [Unknown]
  - Confusional state [Unknown]

NARRATIVE: CASE EVENT DATE: 20151106
